FAERS Safety Report 16220306 (Version 2)
Quarter: 2019Q2

REPORT INFORMATION
  Report Type: Report from Study
  Country: US (occurrence: US)
  Receive Date: 20190420
  Receipt Date: 20190524
  Transmission Date: 20190711
  Serious: No
  Sender: FDA-Public Use
  Company Number: PHEH2019US016772

PATIENT
  Sex: Female

DRUGS (1)
  1. COSENTYX [Suspect]
     Active Substance: SECUKINUMAB
     Indication: PSORIASIS
     Route: 058

REACTIONS (5)
  - Psoriasis [Unknown]
  - Hyperhidrosis [Unknown]
  - Drug ineffective [Unknown]
  - Feeling abnormal [Unknown]
  - Arthralgia [Unknown]
